FAERS Safety Report 9305504 (Version 3)
Quarter: 2018Q1

REPORT INFORMATION
  Report Type: Spontaneous
  Country: US (occurrence: US)
  Receive Date: 20130523
  Receipt Date: 20180226
  Transmission Date: 20180509
  Serious: Yes (Other)
  Sender: FDA-Public Use
  Company Number: US-SANOFI-AVENTIS-2013SA000796

PATIENT
  Age: 26 Year
  Sex: Female
  Weight: 120.2 kg

DRUGS (9)
  1. GILENYA [Concomitant]
     Active Substance: FINGOLIMOD HYDROCHLORIDE
  2. GABAPENTIN. [Concomitant]
     Active Substance: GABAPENTIN
     Indication: NEURALGIA
     Dates: start: 20080914
  3. AUBAGIO [Suspect]
     Active Substance: TERIFLUNOMIDE
     Indication: PROGRESSIVE RELAPSING MULTIPLE SCLEROSIS
     Route: 048
     Dates: start: 201210
  4. AUBAGIO [Suspect]
     Active Substance: TERIFLUNOMIDE
     Indication: PROGRESSIVE RELAPSING MULTIPLE SCLEROSIS
     Route: 048
     Dates: start: 20121119, end: 20130520
  5. AMBIEN [Concomitant]
     Active Substance: ZOLPIDEM TARTRATE
     Indication: SLEEP DISORDER
     Dates: start: 20080914
  6. VITAMIN D [Concomitant]
     Active Substance: CHOLECALCIFEROL
     Indication: HYPOVITAMINOSIS
     Dosage: DOSE:50000 UNIT(S)
     Dates: start: 20080914
  7. BACLOFEN. [Concomitant]
     Active Substance: BACLOFEN
     Indication: MUSCLE SPASMS
     Route: 048
     Dates: start: 20080914
  8. EFFEXOR [Concomitant]
     Active Substance: VENLAFAXINE HYDROCHLORIDE
     Indication: DEPRESSION
     Dates: start: 20100101
  9. TECFIDERA [Concomitant]
     Active Substance: DIMETHYL FUMARATE
     Route: 065
     Dates: start: 20130607

REACTIONS (16)
  - Limb discomfort [Not Recovered/Not Resolved]
  - Visual impairment [Not Recovered/Not Resolved]
  - Multiple sclerosis relapse [Not Recovered/Not Resolved]
  - Urinary incontinence [Not Recovered/Not Resolved]
  - Anal incontinence [Not Recovered/Not Resolved]
  - Muscle spasms [Not Recovered/Not Resolved]
  - Fatigue [Not Recovered/Not Resolved]
  - Condition aggravated [Not Recovered/Not Resolved]
  - Hypertrichosis [Not Recovered/Not Resolved]
  - Neuropathy peripheral [Not Recovered/Not Resolved]
  - Diarrhoea [Unknown]
  - Drug ineffective [Unknown]
  - Cognitive disorder [Not Recovered/Not Resolved]
  - Musculoskeletal pain [Not Recovered/Not Resolved]
  - Skin discolouration [Not Recovered/Not Resolved]
  - Alopecia [Recovered/Resolved]
